FAERS Safety Report 8649475 (Version 3)
Quarter: 2014Q1

REPORT INFORMATION
  Report Type: Spontaneous
  Country: US (occurrence: US)
  Receive Date: 20120705
  Receipt Date: 20140130
  Transmission Date: 20141002
  Serious: Yes (Hospitalization)
  Sender: FDA-Public Use
  Company Number: US-BAYER-2012-064962

PATIENT
  Age: 23 Year
  Sex: Female
  Weight: 82.54 kg

DRUGS (3)
  1. YAZ [Suspect]
     Indication: CONTRACEPTION
     Dosage: 1 DF, QD
     Route: 048
     Dates: start: 200611, end: 201002
  2. YAZ [Suspect]
     Indication: POLYCYSTIC OVARIES
  3. YASMIN [Suspect]
     Indication: CONTRACEPTION
     Dosage: 1 DF, QD
     Route: 048
     Dates: start: 200601, end: 200611

REACTIONS (7)
  - Gallbladder disorder [None]
  - Cholecystitis acute [None]
  - Emotional distress [None]
  - Injury [None]
  - Pain [None]
  - Anxiety [None]
  - Psychological trauma [None]
